FAERS Safety Report 17043665 (Version 1)
Quarter: 2019Q4

REPORT INFORMATION
  Report Type: Spontaneous
  Country: US (occurrence: US)
  Receive Date: 20191017
  Receipt Date: 20191017
  Transmission Date: 20200122
  Serious: No
  Sender: FDA-Public Use
  Company Number: None

PATIENT
  Age: 75 Year
  Sex: Male

DRUGS (9)
  1. CLOBETASOL PROPRIONATE [Concomitant]
     Active Substance: CLOBETASOL PROPIONATE
  2. LOSARTAN POTASSIUM. [Concomitant]
     Active Substance: LOSARTAN POTASSIUM
  3. ELIGARD [Concomitant]
     Active Substance: LEUPROLIDE ACETATE
  4. TRICOR [Concomitant]
     Active Substance: FENOFIBRATE
  5. TOPROL XL [Concomitant]
     Active Substance: METOPROLOL SUCCINATE
  6. VASCEPA [Concomitant]
     Active Substance: ICOSAPENT ETHYL
  7. ABIRATERONE 250MG APOTEX [Suspect]
     Active Substance: ABIRATERONE
     Indication: PROSTATE CANCER
     Route: 048
     Dates: start: 20181229
  8. PREDNISONE. [Concomitant]
     Active Substance: PREDNISONE
  9. METOPROLOL SUCCINATE ER [Concomitant]
     Active Substance: METOPROLOL SUCCINATE

REACTIONS (2)
  - Pulmonary embolism [None]
  - Thrombosis [None]

NARRATIVE: CASE EVENT DATE: 20190715
